FAERS Safety Report 17602242 (Version 1)
Quarter: 2020Q1

REPORT INFORMATION
  Report Type: Spontaneous
  Country: US (occurrence: US)
  Receive Date: 20200330
  Receipt Date: 20200330
  Transmission Date: 20200409
  Serious: Yes (Other)
  Sender: FDA-Public Use
  Company Number: US-009507513-2003USA008831

PATIENT
  Age: 32 Year
  Sex: Female
  Weight: 62.14 kg

DRUGS (3)
  1. NEXPLANON [Suspect]
     Active Substance: ETONOGESTREL
     Indication: CONTRACEPTION
     Dosage: 1 IMPLANT, EVERY 3 YEARS
     Route: 059
     Dates: start: 20191204, end: 20200323
  2. EFFEXOR [Concomitant]
     Active Substance: VENLAFAXINE HYDROCHLORIDE
  3. ANTIMICROBIAL (UNSPECIFIED) [Concomitant]
     Active Substance: UNSPECIFIED INGREDIENT
     Dosage: UNK
     Dates: start: 2020

REACTIONS (3)
  - Pregnancy with implant contraceptive [Unknown]
  - No adverse event [Unknown]
  - Unintended pregnancy [Unknown]
